FAERS Safety Report 4702927-X (Version None)
Quarter: 2005Q2

REPORT INFORMATION
  Report Type: 
  Country: None (occurrence: None)
  Receive Date: 20050629
  Receipt Date: 20050620
  Transmission Date: 20051028
  Serious: Yes (Hospitalization)
  Sender: FDA-Public Use
  Company Number: US-JNJFOC-20050605472

PATIENT
  Age: 70 Year
  Sex: Male

DRUGS (1)
  1. DURAGESIC-100 [Suspect]
     Route: 062
     Dates: start: 20050601

REACTIONS (3)
  - ATRIAL FIBRILLATION [None]
  - HYPERHIDROSIS [None]
  - PYREXIA [None]
